FAERS Safety Report 11444746 (Version 1)
Quarter: 2015Q3

REPORT INFORMATION
  Report Type: Spontaneous
  Country: TR (occurrence: None)
  Receive Date: 20150831
  Receipt Date: 20150831
  Transmission Date: 20151125
  Serious: Yes (Other)
  Sender: FDA-Public Use
  Company Number: DEP_12535_2015

PATIENT
  Age: 51 Year
  Sex: Male

DRUGS (1)
  1. DICLOFENAC (DICLOFENAC) [Suspect]
     Active Substance: DICLOFENAC SODIUM
     Indication: ARTHRALGIA
     Route: 047

REACTIONS (7)
  - Electrocardiogram ST segment elevation [None]
  - Hypersensitivity [None]
  - Lacrimation disorder [None]
  - Acute coronary syndrome [None]
  - Chest pain [None]
  - Rash erythematous [None]
  - Pruritus generalised [None]
